FAERS Safety Report 13612446 (Version 1)
Quarter: 2017Q2

REPORT INFORMATION
  Report Type: Other
  Country: FR (occurrence: FR)
  Receive Date: 20170605
  Receipt Date: 20170605
  Transmission Date: 20170830
  Serious: Yes (Hospitalization, Other)
  Sender: FDA-Public Use
  Company Number: FR-ASTELLAS-2017US021762

PATIENT
  Age: 37 Year
  Sex: Female

DRUGS (1)
  1. VESICARE [Suspect]
     Active Substance: SOLIFENACIN SUCCINATE
     Indication: URINARY INCONTINENCE
     Route: 048
     Dates: start: 20170410, end: 20170421

REACTIONS (6)
  - Vision blurred [Recovered/Resolved]
  - Pneumonia aspiration [Unknown]
  - Dry mouth [Recovered/Resolved]
  - Chest discomfort [Recovered/Resolved]
  - Muscular weakness [Unknown]
  - Urinary tract infection [Unknown]

NARRATIVE: CASE EVENT DATE: 20170421
